FAERS Safety Report 8423954-5 (Version None)
Quarter: 2012Q2

REPORT INFORMATION
  Report Type: 
  Country: None (occurrence: None)
  Receive Date: 20120608
  Receipt Date: 20120529
  Transmission Date: 20120825
  Serious: No
  Sender: FDA-Public Use
  Company Number: US-ASTRAZENECA-2012SE35914

PATIENT
  Age: 55 Year
  Sex: Male
  Weight: 81.6 kg

DRUGS (12)
  1. VICODIN [Concomitant]
  2. SYNTHROID [Concomitant]
  3. DEPAKENE [Concomitant]
  4. PROZAC [Concomitant]
  5. VIAGRA [Concomitant]
  6. TRILIPIX [Concomitant]
  7. KLONOPIN [Concomitant]
  8. SYMBICORT [Suspect]
     Dosage: 160/4.5 UG TWO PUFFS TWICE A DAY
     Route: 055
  9. VITAMIN D [Concomitant]
  10. ZANTAC [Concomitant]
  11. PROAIR HFA [Concomitant]
  12. SEROQUEL XR [Suspect]
     Route: 048

REACTIONS (1)
  - PAIN [None]
